FAERS Safety Report 24064742 (Version 1)
Quarter: 2024Q3

REPORT INFORMATION
  Report Type: Spontaneous
  Country: US (occurrence: None)
  Receive Date: 20240708
  Receipt Date: 20240708
  Transmission Date: 20241017
  Serious: Yes (Other)
  Sender: Public
  Company Number: None

PATIENT
  Age: 44 Year
  Sex: Female
  Weight: 88.65 kg

DRUGS (1)
  1. GONADOTROPHIN, CHORIONIC [Suspect]
     Active Substance: GONADOTROPHIN, CHORIONIC
     Indication: Weight decreased
     Dosage: 1  INJECTION DAILY SUBCUTANEOUS
     Route: 058
     Dates: start: 20240319, end: 20240327

REACTIONS (5)
  - Drug ineffective [None]
  - Suspected counterfeit product [None]
  - Drug monitoring procedure not performed [None]
  - Illness [None]
  - Dizziness [None]

NARRATIVE: CASE EVENT DATE: 20240319
